FAERS Safety Report 6645367-9 (Version None)
Quarter: 2010Q1

REPORT INFORMATION
  Report Type: 
  Country: None (occurrence: None)
  Receive Date: 20100322
  Receipt Date: 20100318
  Transmission Date: 20100710
  Serious: Yes (Hospitalization)
  Sender: FDA-Public Use
  Company Number: DE-MERCK-1002DEU00045

PATIENT
  Age: 40 Year
  Sex: Male
  Weight: 110 kg

DRUGS (2)
  1. VYTORIN [Suspect]
     Indication: HYPERCHOLESTEROLAEMIA
     Route: 048
     Dates: start: 20050623, end: 20050101
  2. VYTORIN [Suspect]
     Route: 048
     Dates: start: 20070219, end: 20100212

REACTIONS (19)
  - ARTHRALGIA [None]
  - ASTHMA [None]
  - AUTOIMMUNE PANCREATITIS [None]
  - BILE DUCT STENOSIS [None]
  - BLOOD BILIRUBIN INCREASED [None]
  - BLOOD CREATINE PHOSPHOKINASE INCREASED [None]
  - BLOOD CREATININE INCREASED [None]
  - DIABETES MELLITUS INADEQUATE CONTROL [None]
  - DIABETIC NEPHROPATHY [None]
  - EOSINOPHILIA [None]
  - HEPATIC STEATOSIS [None]
  - INSULIN-REQUIRING TYPE 2 DIABETES MELLITUS [None]
  - MICROALBUMINURIA [None]
  - MUSCLE SPASMS [None]
  - MYALGIA [None]
  - SEASONAL ALLERGY [None]
  - SJOGREN'S SYNDROME [None]
  - TRANSAMINASES INCREASED [None]
  - VITAMIN D DEFICIENCY [None]
